FAERS Safety Report 18873880 (Version 4)
Quarter: 2022Q1

REPORT INFORMATION
  Report Type: Spontaneous
  Country: US (occurrence: US)
  Receive Date: 20210210
  Receipt Date: 20220316
  Transmission Date: 20220424
  Serious: No
  Sender: FDA-Public Use
  Company Number: US-PFIZER INC-2021116794

PATIENT
  Age: 44 Year
  Sex: Female

DRUGS (24)
  1. IBRANCE [Suspect]
     Active Substance: PALBOCICLIB
     Indication: Breast cancer female
     Dosage: 100 MG, CYCLIC (1 DAILY FOR 21 DAYS)
     Route: 048
     Dates: start: 20201022, end: 202201
  2. VENLAFAXINE HCL [Concomitant]
     Active Substance: VENLAFAXINE HYDROCHLORIDE
     Dosage: 100 MG
  3. AFRIN [OXYMETAZOLINE] [Concomitant]
     Dosage: 0.05 %
  4. ALAWAY [Concomitant]
     Active Substance: KETOTIFEN FUMARATE
     Dosage: 0.025 %
  5. IBUPROFEN [Concomitant]
     Active Substance: IBUPROFEN
     Dosage: 200 MG
  6. ACETAMINOPHEN\HYDROCODONE [Concomitant]
     Active Substance: ACETAMINOPHEN\HYDROCODONE
     Dosage: UNK
  7. ZOMETA [Concomitant]
     Active Substance: ZOLEDRONIC ACID
     Dosage: UNK (4 MG/100ML)
  8. LETROZOLE [Concomitant]
     Active Substance: LETROZOLE
     Dosage: 2.5 MG
  9. ROGAINE [Concomitant]
     Active Substance: MINOXIDIL
     Dosage: 2 %
  10. BIOTIN [Concomitant]
     Active Substance: BIOTIN
     Dosage: 1 MG
  11. MELATONIN [Concomitant]
     Active Substance: MELATONIN
     Dosage: 10 MG
  12. PROBIOTICS NOS [Concomitant]
     Active Substance: PROBIOTICS NOS
     Dosage: UNK (100B CELL CAPSULE)
  13. POTASSIUM [Concomitant]
     Active Substance: POTASSIUM
     Dosage: UNK (595(99)MG)
  14. CALCIUM [Concomitant]
     Active Substance: CALCIUM
     Dosage: UNK (500(1250))
  15. MAGNESIUM [Concomitant]
     Active Substance: MAGNESIUM
     Dosage: 100 MG
  16. GRANIX [Concomitant]
     Active Substance: TBO-FILGRASTIM
     Dosage: UNK
  17. TRU NIAGEN [Concomitant]
  18. CANNABIS SATIVA SUBSP. INDICA TOP [Concomitant]
     Active Substance: CANNABIS SATIVA SUBSP. INDICA TOP
     Route: 048
  19. ADVIL [Concomitant]
     Active Substance: IBUPROFEN
  20. CYMBALTA [Concomitant]
     Active Substance: DULOXETINE HYDROCHLORIDE
  21. EXEMESTANE [Concomitant]
     Active Substance: EXEMESTANE
  22. OXYCODONE HYDROCHLORIDE [Concomitant]
     Active Substance: OXYCODONE HYDROCHLORIDE
  23. KETOTIFEN [Concomitant]
     Active Substance: KETOTIFEN
     Dosage: UNK
  24. NORCO [Concomitant]
     Active Substance: ACETAMINOPHEN\HYDROCODONE BITARTRATE
     Dosage: UNK

REACTIONS (6)
  - Neoplasm progression [Unknown]
  - Visual impairment [Unknown]
  - Alopecia [Unknown]
  - Fatigue [Unknown]
  - Fibromyalgia [Unknown]
  - Hot flush [Unknown]
